FAERS Safety Report 8837113 (Version 2)
Quarter: 2012Q4

REPORT INFORMATION
  Report Type: 
  Country: US (occurrence: US)
  Receive Date: 20121012
  Receipt Date: 20121029
  Transmission Date: 20130627
  Serious: No
  Sender: FDA-Public Use
  Company Number: US-009507513-1210USA005002

PATIENT
  Sex: Male

DRUGS (2)
  1. VICTRELIS [Suspect]
     Indication: HEPATITIS C
     Dosage: UNK
     Dates: start: 20120201, end: 20120203
  2. RIBAVIRIN [Suspect]
     Indication: HEPATITIS C
     Dosage: 2 DF, qd
     Dates: start: 20120201, end: 20120203

REACTIONS (10)
  - Pain [Not Recovered/Not Resolved]
  - Renal pain [Unknown]
  - Prostatic pain [Unknown]
  - Sciatica [Unknown]
  - Confusional state [Unknown]
  - Weight increased [Unknown]
  - Weight increased [Unknown]
  - Speech disorder [Unknown]
  - Memory impairment [Unknown]
  - Headache [Unknown]
